FAERS Safety Report 25068049 (Version 1)
Quarter: 2025Q1

REPORT INFORMATION
  Report Type: Spontaneous
  Country: US (occurrence: None)
  Receive Date: 20250311
  Receipt Date: 20250311
  Transmission Date: 20250408
  Serious: No
  Sender: FDA-CTU
  Company Number: None

PATIENT
  Age: 65 Year
  Sex: Female
  Weight: 99 kg

DRUGS (8)
  1. NITROFURANTOIN MONOHYDRATE MACROCRYSTALS [Suspect]
     Active Substance: NITROFURANTOIN\NITROFURANTOIN MONOHYDRATE
     Indication: Urinary tract infection
     Dosage: 1 CAPSULE EVERY 12 HOURS ORAL
     Route: 048
     Dates: start: 20250203, end: 20250205
  2. LEVOTHYROXINE [Concomitant]
     Active Substance: LEVOTHYROXINE
  3. OMEPRAZOLE [Concomitant]
     Active Substance: OMEPRAZOLE
  4. tumeric gummies [Concomitant]
  5. vitamin C gummies [Concomitant]
  6. multi vitamin gummies [Concomitant]
  7. B12 [Concomitant]
  8. Cranberry Supplement gummies [Concomitant]

REACTIONS (5)
  - Hypoaesthesia [None]
  - Chromaturia [None]
  - Gait disturbance [None]
  - Abdominal discomfort [None]
  - Paraesthesia [None]

NARRATIVE: CASE EVENT DATE: 20250205
